FAERS Safety Report 4586981-4 (Version None)
Quarter: 2005Q1

REPORT INFORMATION
  Report Type: 
  Country: None (occurrence: None)
  Receive Date: 20050218
  Receipt Date: 20050211
  Transmission Date: 20050727
  Serious: Yes (Death)
  Sender: FDA-Public Use
  Company Number: US-JNJFOC-20040600990

PATIENT
  Sex: Female

DRUGS (1)
  1. DURAGESIC-100 [Suspect]
     Indication: CANCER PAIN
     Dosage: 75 UG/HR PATCHES, 5-6 IN 72 HOURS
     Route: 062
     Dates: end: 20040410

REACTIONS (3)
  - BRAIN NEOPLASM MALIGNANT [None]
  - CERVIX CARCINOMA [None]
  - LUNG CANCER METASTATIC [None]
